FAERS Safety Report 11239487 (Version 1)
Quarter: 2015Q3

REPORT INFORMATION
  Report Type: Spontaneous
  Country: US (occurrence: US)
  Receive Date: 20150706
  Receipt Date: 20150706
  Transmission Date: 20151125
  Serious: No
  Sender: FDA-Public Use
  Company Number: US-BAYER-2015-369023

PATIENT
  Age: 79 Year
  Sex: Male
  Weight: 83.9 kg

DRUGS (3)
  1. PLAVIX [Concomitant]
     Active Substance: CLOPIDOGREL BISULFATE
     Dosage: UNK
  2. MIRALAX [Suspect]
     Active Substance: POLYETHYLENE GLYCOL 3350
     Indication: CONSTIPATION
     Dosage: CORRECTLY BY FILLING IT ONLY TO THE TOP OF THE WHITE PORTION OF THE CAP, PRN
     Route: 048
     Dates: start: 201504, end: 201505
  3. MIRALAX [Suspect]
     Active Substance: POLYETHYLENE GLYCOL 3350
     Indication: CONSTIPATION
     Dosage: FILLED IT ALL THE WAY TO THE TOP OF THE CAP AS A DOSE, QD
     Route: 048
     Dates: start: 20150527

REACTIONS (1)
  - Product use issue [Unknown]

NARRATIVE: CASE EVENT DATE: 20150527
